FAERS Safety Report 4980419-0 (Version None)
Quarter: 2006Q2

REPORT INFORMATION
  Report Type: 
  Country: None (occurrence: None)
  Receive Date: 20060424
  Receipt Date: 20041203
  Transmission Date: 20061013
  Serious: Yes (Other)
  Sender: FDA-Public Use
  Company Number: GB-GLAXOSMITHKLINE-B0360923A

PATIENT
  Sex: Male

DRUGS (2)
  1. PAROXETINE HYDROCHLORIDE [Suspect]
     Route: 065
     Dates: start: 19960301
  2. THIORIDAZINE HCL [Concomitant]
     Dates: start: 19970701

REACTIONS (7)
  - ANGER [None]
  - CONSTIPATION [None]
  - DRUG WITHDRAWAL SYNDROME [None]
  - EJACULATION DELAYED [None]
  - ERECTILE DYSFUNCTION [None]
  - LIBIDO DECREASED [None]
  - SUICIDAL IDEATION [None]
